FAERS Safety Report 6114289-4 (Version None)
Quarter: 2009Q1

REPORT INFORMATION
  Report Type: 
  Country: None (occurrence: None)
  Receive Date: 20090312
  Receipt Date: 20081218
  Transmission Date: 20090719
  Serious: No
  Sender: FDA-Public Use
  Company Number: US-ABBOTT-08P-163-0489647-00

PATIENT
  Sex: Female

DRUGS (10)
  1. DEPAKOTE [Suspect]
     Indication: MIGRAINE
     Dates: start: 20080601
  2. DEPAKOTE [Suspect]
     Dosage: WEANING DOWN
     Route: 048
     Dates: start: 20080101
  3. SYNTHROID [Suspect]
     Indication: HYPOTHYROIDISM
     Route: 048
     Dates: start: 20070601
  4. LIOTHYRONINE SODIUM [Concomitant]
     Indication: HYPOTHYROIDISM
  5. ALEGRA D [Concomitant]
     Indication: HYPERSENSITIVITY
  6. VENLAFAXINE HYDROCHLORIDE [Concomitant]
     Indication: DRUG USE FOR UNKNOWN INDICATION
  7. TOPIRAMATE [Concomitant]
     Indication: MIGRAINE
  8. RIZATRIPTAN BENZOATE [Concomitant]
     Indication: MIGRAINE
  9. TYLOX [Concomitant]
     Indication: PAIN
     Dosage: PRN
  10. PETHIDINE HYDROCHLORIDE [Concomitant]
     Indication: PAIN
     Dosage: PRN

REACTIONS (1)
  - ALOPECIA [None]
